FAERS Safety Report 26182460 (Version 1)
Quarter: 2025Q4

REPORT INFORMATION
  Report Type: Spontaneous
  Country: AU (occurrence: AU)
  Receive Date: 20251221
  Receipt Date: 20251221
  Transmission Date: 20260118
  Serious: Yes (Other)
  Sender: ACCORD
  Company Number: None

PATIENT
  Age: 1 Year
  Sex: Female

DRUGS (1)
  1. QUETIAPINE FUMARATE [Suspect]
     Active Substance: QUETIAPINE FUMARATE
     Indication: Product used for unknown indication

REACTIONS (6)
  - Foetal exposure during pregnancy [Unknown]
  - Neonatal oversedation [Unknown]
  - Neonatal behavioural syndrome [Unknown]
  - Off label use [Unknown]
  - Toxicity to various agents [Unknown]
  - Withdrawal syndrome [Unknown]
